FAERS Safety Report 5024899-3 (Version None)
Quarter: 2006Q2

REPORT INFORMATION
  Report Type: 
  Country: None (occurrence: None)
  Receive Date: 20060607
  Receipt Date: 20060523
  Transmission Date: 20061013
  Serious: Yes (Other)
  Sender: FDA-Public Use
  Company Number: DE200605005932

PATIENT
  Age: 14 Year
  Sex: Female
  Weight: 68 kg

DRUGS (2)
  1. STRATTERA [Suspect]
     Indication: ATTENTION DEFICIT/HYPERACTIVITY DISORDER
     Dosage: 60 MG, DAILY (1/D), OIRAL
  2. STRATTERA [Suspect]
     Indication: PSYCHOMOTOR HYPERACTIVITY
     Dosage: 60 MG, DAILY (1/D), OIRAL

REACTIONS (6)
  - AMNESIA [None]
  - DELIRIUM [None]
  - DELUSIONAL DISORDER, UNSPECIFIED TYPE [None]
  - MOOD ALTERED [None]
  - PERSONALITY CHANGE [None]
  - SUICIDAL IDEATION [None]
